FAERS Safety Report 18327159 (Version 4)
Quarter: 2020Q4

REPORT INFORMATION
  Report Type: Spontaneous
  Country: US (occurrence: US)
  Receive Date: 20200929
  Receipt Date: 20201230
  Transmission Date: 20210113
  Serious: No
  Sender: FDA-Public Use
  Company Number: US-VIFOR (INTERNATIONAL) INC.-VIT-2020-09575

PATIENT
  Age: 62 Year
  Sex: Female
  Weight: 100.33 kg

DRUGS (23)
  1. VELTASSA [Suspect]
     Active Substance: PATIROMER
     Indication: HYPERKALAEMIA
     Route: 048
     Dates: start: 20200616
  2. VELTASSA [Suspect]
     Active Substance: PATIROMER
     Dosage: INCREASED DOSE
     Route: 048
     Dates: start: 202008
  3. VITAMIN D3 [Concomitant]
     Active Substance: CHOLECALCIFEROL
     Route: 048
  4. MELATONIN [Concomitant]
     Active Substance: MELATONIN
     Route: 048
     Dates: start: 202010
  5. MYFORTIC [Concomitant]
     Active Substance: MYCOPHENOLATE SODIUM
     Dosage: DELAYED RELEASE TABLET
     Route: 048
  6. DITROPAN [Concomitant]
     Active Substance: OXYBUTYNIN CHLORIDE
     Dosage: 2 TIMES A DAY AS NEEDED
     Route: 048
  7. GOLYTELY [Concomitant]
     Active Substance: POLYETHYLENE GLYCOL 3350\POTASSIUM CHLORIDE\SODIUM BICARBONATE\SODIUM CHLORIDE\SODIUM SULFATE
     Dosage: PACKET, TAKE AS DIRECTED
  8. TYLENOL [Concomitant]
     Active Substance: ACETAMINOPHEN
     Indication: PAIN
     Dosage: TAKE 1-2 TABLETS BY MOUTH EVERY 4-6 HOURS.
     Route: 048
  9. GAVILYTE G [Concomitant]
     Active Substance: POLYETHYLENE GLYCOL 3350\POTASSIUM CHLORIDE\SODIUM BICARBONATE\SODIUM CHLORIDE\SODIUM SULFATE
     Dosage: 236-22.74-6.74-5.86 GRAM
  10. TUMS [Concomitant]
     Active Substance: CALCIUM CARBONATE
     Dosage: CHEW 3 TABLETS 2 TIMES A DAY
     Route: 048
  11. ENVARSUS XR [Concomitant]
     Active Substance: TACROLIMUS
     Dosage: EXTENDED RELEASE TABLET, TAKE 4MG TABLET FOR A TOTAL DOSE OF 5MG
     Route: 048
  12. ZYRTEC [Concomitant]
     Active Substance: CETIRIZINE HYDROCHLORIDE
     Indication: HYPERSENSITIVITY
     Route: 048
  13. TYLENOL [Concomitant]
     Active Substance: ACETAMINOPHEN
     Indication: PYREXIA
     Dosage: TAKE 1-2 TABLETS BY MOUTH EVERY 6 HOURS.
     Route: 048
  14. PEPCID [Concomitant]
     Active Substance: FAMOTIDINE
     Route: 048
  15. DITROPAN [Concomitant]
     Active Substance: OXYBUTYNIN CHLORIDE
     Indication: URINARY TRACT DISCOMFORT
     Dosage: 2 OR 3 TIMES A DAY AS NEEDED
     Route: 048
  16. DELTASONE [Concomitant]
     Active Substance: PREDNISONE
     Route: 048
  17. VELTASSA [Suspect]
     Active Substance: PATIROMER
     Dosage: 2 PACKETS DAILY
     Route: 048
  18. COLACE [Concomitant]
     Active Substance: DOCUSATE SODIUM
     Indication: CONSTIPATION
     Route: 048
  19. NORVASC [Concomitant]
     Active Substance: AMLODIPINE BESYLATE
     Route: 048
  20. BIOTIN [Concomitant]
     Active Substance: BIOTIN
     Route: 048
  21. COREG [Concomitant]
     Active Substance: CARVEDILOL
     Route: 048
  22. ENVARSUS XR [Concomitant]
     Active Substance: TACROLIMUS
     Dosage: EXTENDED RELEASE TABLET, TAKE ONE 1MG AND ONE 4MG TABLET FOR A TOTAL DOSE OF 5MG DAILY
     Route: 048
  23. SODIUM BICARBONATE. [Concomitant]
     Active Substance: SODIUM BICARBONATE
     Route: 048

REACTIONS (11)
  - Blood creatinine increased [Unknown]
  - Flatulence [Not Recovered/Not Resolved]
  - Product colour issue [Not Recovered/Not Resolved]
  - Vulvovaginal mycotic infection [Recovered/Resolved]
  - Blood creatinine abnormal [Recovered/Resolved]
  - Product dose omission issue [Unknown]
  - Peripheral swelling [Recovered/Resolved]
  - Weight fluctuation [Recovered/Resolved]
  - Alopecia [Not Recovered/Not Resolved]
  - Constipation [Not Recovered/Not Resolved]
  - Weight increased [Not Recovered/Not Resolved]

NARRATIVE: CASE EVENT DATE: 2020
